FAERS Safety Report 8909673 (Version 1)
Quarter: 2012Q4

REPORT INFORMATION
  Report Type: Spontaneous
  Country: US (occurrence: None)
  Receive Date: 20121109
  Receipt Date: 20121109
  Transmission Date: 20130627
  Serious: Yes (Life-Threatening, Hospitalization)
  Sender: FDA-Public Use
  Company Number: DAV-AE-LOR-12-01

PATIENT
  Age: 34 Year
  Sex: Female

DRUGS (1)
  1. LORAZEPAM [Suspect]
     Dosage: 120 tablets

REACTIONS (8)
  - Overdose [None]
  - Unresponsive to stimuli [None]
  - Oxygen saturation decreased [None]
  - Pupillary reflex impaired [None]
  - Heart rate increased [None]
  - Blood pressure increased [None]
  - Drug screen positive [None]
  - Stress cardiomyopathy [None]
